FAERS Safety Report 7340664-6 (Version None)
Quarter: 2011Q1

REPORT INFORMATION
  Report Type: 
  Country: None (occurrence: None)
  Receive Date: 20110228
  Receipt Date: 20110214
  Transmission Date: 20110831
  Serious: Yes (Other)
  Sender: FDA-Public Use
  Company Number: CIO11000934

PATIENT
  Sex: Female

DRUGS (1)
  1. METAMUCIL-2 [Suspect]
     Dosage: 1 TSP, 1 ONLY, ORAL
     Route: 048
     Dates: start: 20110111, end: 20110111

REACTIONS (18)
  - EPISTAXIS [None]
  - PRODUCT SUBSTITUTION ISSUE [None]
  - MALAISE [None]
  - THINKING ABNORMAL [None]
  - HAND FRACTURE [None]
  - FACE INJURY [None]
  - JAW DISORDER [None]
  - INJURY [None]
  - NASAL OEDEMA [None]
  - FALL [None]
  - CHANGE OF BOWEL HABIT [None]
  - NAUSEA [None]
  - LOSS OF CONSCIOUSNESS [None]
  - FACIAL BONES FRACTURE [None]
  - CONCUSSION [None]
  - ABDOMINAL DISTENSION [None]
  - FEELING ABNORMAL [None]
  - DIARRHOEA [None]
